FAERS Safety Report 5621229-0 (Version None)
Quarter: 2008Q1

REPORT INFORMATION
  Report Type: 
  Country: None (occurrence: None)
  Receive Date: 20080114
  Receipt Date: 20070220
  Transmission Date: 20080703
  Serious: Yes (Life-Threatening)
  Sender: FDA-Public Use
  Company Number: A03200701551

PATIENT

DRUGS (2)
  1. PLAVIX [Suspect]
     Indication: ANGIOPLASTY
     Dosage: 75 MG QD-ORAL
     Route: 048
  2. ACETYLSALICYLIC ACID SRT [Concomitant]

REACTIONS (2)
  - GASTROINTESTINAL HAEMORRHAGE [None]
  - OESOPHAGEAL ULCER [None]
